FAERS Safety Report 26208862 (Version 1)
Quarter: 2025Q4

REPORT INFORMATION
  Report Type: Spontaneous
  Country: CN (occurrence: CN)
  Receive Date: 20251229
  Receipt Date: 20251229
  Transmission Date: 20260117
  Serious: Yes (Other)
  Sender: BAYER HEALTHCARE PHARMACEUTICALS INC.
  Company Number: CN-BAYER-2025A169973

PATIENT
  Age: 51 Year
  Sex: Female
  Weight: 65 kg

DRUGS (2)
  1. ULTRAVIST [Suspect]
     Active Substance: IOPROMIDE
     Indication: Angiocardiogram
     Dosage: 76.89 G, ONCE
     Route: 013
     Dates: start: 20251224, end: 20251224
  2. ULTRAVIST [Suspect]
     Active Substance: IOPROMIDE
     Indication: Arteriosclerosis coronary artery

REACTIONS (6)
  - Nausea [Recovered/Resolved]
  - Feeling cold [Recovered/Resolved]
  - Rash erythematous [Recovered/Resolved]
  - Blood pressure fluctuation [None]
  - Heart rate decreased [Recovered/Resolved]
  - Pallor [Recovered/Resolved]

NARRATIVE: CASE EVENT DATE: 20251224
